FAERS Safety Report 9416908 (Version 1)
Quarter: 2013Q3

REPORT INFORMATION
  Report Type: Spontaneous
  Country: US (occurrence: US)
  Receive Date: 20130724
  Receipt Date: 20130724
  Transmission Date: 20140515
  Serious: Yes (Other)
  Sender: FDA-Public Use
  Company Number: US-ROCHE-1251293

PATIENT
  Age: 52 Year
  Sex: Male

DRUGS (2)
  1. ERIVEDGE [Suspect]
     Indication: BASAL CELL CARCINOMA
     Route: 048
     Dates: start: 201205, end: 201212
  2. ERIVEDGE [Suspect]
     Route: 048
     Dates: start: 201304

REACTIONS (7)
  - Feeling abnormal [Recovering/Resolving]
  - Coordination abnormal [Recovering/Resolving]
  - Muscle spasms [Recovering/Resolving]
  - Dysgeusia [Recovering/Resolving]
  - Decreased appetite [Recovering/Resolving]
  - Nausea [Recovering/Resolving]
  - Alopecia [Recovering/Resolving]
